FAERS Safety Report 21943722 (Version 1)
Quarter: 2023Q1

REPORT INFORMATION
  Report Type: Spontaneous
  Country: US (occurrence: None)
  Receive Date: 20230201
  Receipt Date: 20230201
  Transmission Date: 20230417
  Serious: Yes (Hospitalization)
  Sender: FDA-Public Use
  Company Number: None

PATIENT
  Sex: Female
  Weight: 58.6 kg

DRUGS (3)
  1. DARATUMUMAB\HYALURONIDASE-FIHJ [Suspect]
     Active Substance: DARATUMUMAB\HYALURONIDASE-FIHJ
     Dates: end: 20220112
  2. DEXAMETHASONE [Suspect]
     Active Substance: DEXAMETHASONE
     Dates: end: 20230119
  3. LENALIDOMIDE [Suspect]
     Active Substance: LENALIDOMIDE
     Dates: end: 20230104

REACTIONS (16)
  - Hypotension [None]
  - Tachycardia [None]
  - Tachypnoea [None]
  - Spinal cord compression [None]
  - Total lung capacity decreased [None]
  - Lung opacity [None]
  - Delirium [None]
  - Hypercapnia [None]
  - Respiratory failure [None]
  - Disease progression [None]
  - Encephalopathy [None]
  - Condition aggravated [None]
  - Somnolence [None]
  - Atelectasis [None]
  - Pneumonia [None]
  - Hyponatraemia [None]

NARRATIVE: CASE EVENT DATE: 20230121
